FAERS Safety Report 16678696 (Version 1)
Quarter: 2019Q3

REPORT INFORMATION
  Report Type: Spontaneous
  Country: US (occurrence: US)
  Receive Date: 20190806
  Receipt Date: 20190806
  Transmission Date: 20191004
  Serious: Yes (Hospitalization)
  Sender: FDA-Public Use
  Company Number: None

PATIENT
  Age: 65 Year
  Sex: Female

DRUGS (9)
  1. LEVEMIR [Concomitant]
     Active Substance: INSULIN DETEMIR
  2. TRULICITY [Concomitant]
     Active Substance: DULAGLUTIDE
  3. LISINOPRIL. [Suspect]
     Active Substance: LISINOPRIL
  4. ESOMEPRAZOLE. [Concomitant]
     Active Substance: ESOMEPRAZOLE MAGNESIUM
  5. NOVOLOG [Concomitant]
     Active Substance: INSULIN ASPART
  6. XELJANZ [Suspect]
     Active Substance: TOFACITINIB CITRATE
     Indication: RHEUMATOID ARTHRITIS
     Route: 048
     Dates: start: 20180430
  7. BENICAR [Concomitant]
     Active Substance: OLMESARTAN MEDOXOMIL
  8. INVOKANA [Concomitant]
     Active Substance: CANAGLIFLOZIN
  9. PRAVASTATIN. [Concomitant]
     Active Substance: PRAVASTATIN

REACTIONS (3)
  - Palpitations [None]
  - Renal disorder [None]
  - Myocardial infarction [None]

NARRATIVE: CASE EVENT DATE: 20190702
